FAERS Safety Report 10991218 (Version 2)
Quarter: 2015Q2

REPORT INFORMATION
  Report Type: Spontaneous
  Country: US (occurrence: US)
  Receive Date: 20150406
  Receipt Date: 20150518
  Transmission Date: 20150821
  Serious: Yes (Death, Hospitalization, Other)
  Sender: FDA-Public Use
  Company Number: US-009507513-1504USA001953

PATIENT
  Sex: Male
  Weight: 122.45 kg

DRUGS (2)
  1. JANUVIA [Suspect]
     Active Substance: SITAGLIPTIN PHOSPHATE
     Indication: TYPE 2 DIABETES MELLITUS
     Dosage: 100 MG, QD
     Route: 048
     Dates: start: 20061128, end: 20070907
  2. JANUMET [Suspect]
     Active Substance: METFORMIN HYDROCHLORIDE\SITAGLIPTIN PHOSPHATE
     Indication: TYPE 2 DIABETES MELLITUS
     Dosage: 50/500 MG, QD
     Route: 048
     Dates: start: 20070927, end: 20090527

REACTIONS (10)
  - Overdose [Unknown]
  - Pancreatitis [Unknown]
  - Inappropriate schedule of drug administration [Unknown]
  - Upper gastrointestinal haemorrhage [Unknown]
  - Pancreatic carcinoma [Unknown]
  - Lower gastrointestinal haemorrhage [Unknown]
  - Blood cholesterol increased [Unknown]
  - Hypertension [Unknown]
  - Death [Fatal]
  - Pancreaticoduodenectomy [Unknown]

NARRATIVE: CASE EVENT DATE: 2006
